FAERS Safety Report 18653238 (Version 3)
Quarter: 2021Q2

REPORT INFORMATION
  Report Type: Report from Study
  Country: None (occurrence: US)
  Receive Date: 20201222
  Receipt Date: 20210405
  Transmission Date: 20210717
  Serious: Yes (Other)
  Sender: FDA-Public Use
  Company Number: US-ABBVIE-20K-163-3700641-00

PATIENT
  Age: 58 Year
  Sex: Female

DRUGS (2)
  1. HUMIRA [Suspect]
     Active Substance: ADALIMUMAB
     Indication: RHEUMATOID ARTHRITIS
     Dosage: CITRATE FREE
     Route: 058
  2. HUMIRA [Suspect]
     Active Substance: ADALIMUMAB
     Dosage: CITRATE FREE
     Route: 058

REACTIONS (10)
  - Tinnitus [Recovering/Resolving]
  - Nephrolithiasis [Unknown]
  - Breast cancer [Unknown]
  - COVID-19 [Recovering/Resolving]
  - Arthralgia [Recovering/Resolving]
  - Post procedural complication [Recovering/Resolving]
  - Biliary colic [Unknown]
  - Cholecystectomy [Recovered/Resolved]
  - Volvulus [Unknown]
  - Feeling abnormal [Recovering/Resolving]

NARRATIVE: CASE EVENT DATE: 2020
